FAERS Safety Report 4413979-9 (Version None)
Quarter: 2004Q3

REPORT INFORMATION
  Report Type: 
  Country: None (occurrence: None)
  Receive Date: 20040728
  Receipt Date: 20040715
  Transmission Date: 20050211
  Serious: Yes (Hospitalization)
  Sender: FDA-Public Use
  Company Number: S04-GER-03185-01

PATIENT
  Age: 44 Year
  Sex: Female

DRUGS (1)
  1. CITALOPRAM [Suspect]
     Dosage: 20 MG QD PO
     Route: 048
     Dates: start: 20040501

REACTIONS (2)
  - MENORRHAGIA [None]
  - MENSTRUAL DISORDER [None]
